FAERS Safety Report 4766766-6 (Version None)
Quarter: 2005Q3

REPORT INFORMATION
  Report Type: 
  Country: None (occurrence: None)
  Receive Date: 20050912
  Receipt Date: 20050901
  Transmission Date: 20060218
  Serious: Yes (Other)
  Sender: FDA-Public Use
  Company Number: 2005122949

PATIENT
  Sex: Female

DRUGS (2)
  1. MEDROXYPROGESTERONE ACETATE [Suspect]
     Indication: HORMONE REPLACEMENT THERAPY
  2. ESTROGENS (ESTROGENS) [Suspect]
     Indication: HORMONE REPLACEMENT THERAPY

REACTIONS (1)
  - UNEVALUABLE EVENT [None]
